FAERS Safety Report 4846637-7 (Version None)
Quarter: 2005Q4

REPORT INFORMATION
  Report Type: 
  Country: None (occurrence: None)
  Receive Date: 20051202
  Receipt Date: 20051128
  Transmission Date: 20060501
  Serious: Yes (Death, Hospitalization)
  Sender: FDA-Public Use
  Company Number: 200510327BNE

PATIENT
  Age: 43 Year
  Sex: Female
  Weight: 57 kg

DRUGS (15)
  1. ASPIRIN [Suspect]
     Indication: MYOCARDIAL INFARCTION
     Dosage: 300 MG, TOTAL DAILY INTRAVENOUS ORAL
     Route: 042
     Dates: start: 20050423, end: 20050429
  2. ASPIRIN [Suspect]
     Indication: MYOCARDIAL INFARCTION
     Dosage: 300 MG, TOTAL DAILY INTRAVENOUS ORAL
     Route: 042
     Dates: start: 20050422
  3. REOPRO [Suspect]
     Indication: ACUTE MYOCARDIAL INFARCTION
     Dosage: 300 + 75 MG, TOTAL, DAILY , INTRAVENOUS BOLUS ORAL SEE IMAGE
     Route: 040
     Dates: start: 20050423, end: 20050429
  4. REOPRO [Suspect]
     Indication: ACUTE MYOCARDIAL INFARCTION
     Dosage: 300 + 75 MG, TOTAL, DAILY , INTRAVENOUS BOLUS ORAL SEE IMAGE
     Route: 040
     Dates: start: 20050422
  5. CLOPIDOGREL [Suspect]
     Indication: CORONARY ARTERIAL STENT INSERTION
     Dosage: 300 + 75 MG, TOTAL DAILY, INTRAVENOUS ORAL  SEE IMAGE
     Route: 042
     Dates: start: 20050423, end: 20050429
  6. CLOPIDOGREL [Suspect]
     Indication: CORONARY ARTERIAL STENT INSERTION
     Dosage: 300 + 75 MG, TOTAL DAILY, INTRAVENOUS ORAL  SEE IMAGE
     Route: 042
     Dates: start: 20050422
  7. ENOXAPARIN SODIUM [Suspect]
     Indication: MYOCARDIAL INFARCTION
     Dosage: 40 MG, BID, TOTAL DAILY, SUBCUTANEOUS
     Route: 058
     Dates: start: 20050422, end: 20050424
  8. ENOXAPARIN SODIUM [Suspect]
     Indication: MYOCARDIAL INFARCTION
     Dosage: 40 MG, BID, TOTAL DAILY, SUBCUTANEOUS
     Route: 058
     Dates: start: 20050424, end: 20050427
  9. HEPARIN [Suspect]
     Indication: PERIPHERAL VASCULAR DISORDER
     Dosage: 5500 + 5000 IU, TOTAL DAILY, INTRAVEN
     Route: 042
     Dates: start: 20050422
  10. HEPARIN [Suspect]
     Indication: PERIPHERAL VASCULAR DISORDER
     Dosage: 5500 + 5000 IU, TOTAL DAILY, INTRAVEN
     Route: 042
     Dates: start: 20050423
  11. ATORVASTATIN CALCIUM [Concomitant]
  12. CIPRALAX [Concomitant]
  13. BISOPROLOL [Concomitant]
  14. NICORETTE TRANSDERMAL PATCH [Concomitant]
  15. RAMIPRIL [Concomitant]

REACTIONS (4)
  - BRAIN DEATH [None]
  - CEREBRAL HAEMORRHAGE [None]
  - PAIN [None]
  - THROMBOCYTOPENIA [None]
